FAERS Safety Report 23894094 (Version 1)
Quarter: 2024Q2

REPORT INFORMATION
  Report Type: Spontaneous
  Country: US (occurrence: None)
  Receive Date: 20240524
  Receipt Date: 20240524
  Transmission Date: 20240715
  Serious: No
  Sender: FDA-Public Use
  Company Number: US-ROCHE-3449358

PATIENT
  Sex: Female
  Weight: 54.48 kg

DRUGS (7)
  1. OCREVUS [Suspect]
     Active Substance: OCRELIZUMAB
     Indication: Relapsing-remitting multiple sclerosis
     Dosage: NEXT DOSE ON 18/MAY/2023 AND LAST INFUSION WAS ON 26/MAY2023. SCHEDULED FOR HER NEXT INFUSION IN 26/
     Route: 065
     Dates: start: 2019
  2. LYRICA [Concomitant]
     Active Substance: PREGABALIN
     Indication: Pain
  3. VITAMIN D3 [Concomitant]
     Active Substance: CHOLECALCIFEROL
  4. VILAZODONE [Concomitant]
     Active Substance: VILAZODONE
  5. BIOTIN [Concomitant]
     Active Substance: BIOTIN
     Dosage: FOR HAIR
  6. ZYRTEC [Concomitant]
     Active Substance: CETIRIZINE HYDROCHLORIDE
     Indication: Hypersensitivity
  7. BACLOFEN [Concomitant]
     Active Substance: BACLOFEN

REACTIONS (4)
  - Fatigue [Not Recovered/Not Resolved]
  - Pain [Not Recovered/Not Resolved]
  - Alopecia [Unknown]
  - Quality of life decreased [Unknown]
